FAERS Safety Report 7106344-7 (Version None)
Quarter: 2010Q4

REPORT INFORMATION
  Report Type: 
  Country: None (occurrence: None)
  Receive Date: 20101116
  Receipt Date: 20101112
  Transmission Date: 20110411
  Serious: Yes (Life-Threatening, Hospitalization)
  Sender: FDA-Public Use
  Company Number: US-JNJFOC-20100906634

PATIENT
  Age: 27 Year
  Sex: Male
  Weight: 82.56 kg

DRUGS (3)
  1. INVEGA SUSTENNA [Suspect]
     Indication: SCHIZOAFFECTIVE DISORDER
     Route: 030
  2. INVEGA SUSTENNA [Suspect]
     Route: 030
  3. TRAZODONE HCL [Concomitant]
     Indication: INSOMNIA
     Route: 065

REACTIONS (2)
  - NEUROLEPTIC MALIGNANT SYNDROME [None]
  - PYREXIA [None]
